FAERS Safety Report 14302262 (Version 1)
Quarter: 2017Q4

REPORT INFORMATION
  Report Type: Spontaneous
  Country: US (occurrence: US)
  Receive Date: 20171219
  Receipt Date: 20171219
  Transmission Date: 20180321
  Serious: No
  Sender: FDA-Public Use
  Company Number: US-SUPERNUS PHARMACEUTICALS, INC.-2017SUP00028

PATIENT
  Sex: Female
  Weight: 61.22 kg

DRUGS (7)
  1. TROKENDI XR [Suspect]
     Active Substance: TOPIRAMATE
     Dosage: 50 MG, 1X/DAY
     Route: 048
     Dates: start: 201609
  2. MONTELUKAST [Concomitant]
     Active Substance: MONTELUKAST SODIUM
  3. BOTOX [Concomitant]
     Active Substance: ONABOTULINUMTOXINA
     Indication: MIGRAINE
  4. TROKENDI XR [Suspect]
     Active Substance: TOPIRAMATE
     Dosage: UNK
     Dates: start: 2015, end: 201609
  5. ALDACTONE [Concomitant]
     Active Substance: SPIRONOLACTONE
  6. METFORMIN [Concomitant]
     Active Substance: METFORMIN HYDROCHLORIDE
  7. TROKENDI XR [Suspect]
     Active Substance: TOPIRAMATE
     Indication: MIGRAINE
     Dosage: 100 MG, 1X/DAY
     Route: 048
     Dates: start: 201609

REACTIONS (2)
  - Muscle twitching [Not Recovered/Not Resolved]
  - Memory impairment [Not Recovered/Not Resolved]

NARRATIVE: CASE EVENT DATE: 2015
